FAERS Safety Report 9060836 (Version 2)
Quarter: 2013Q1

REPORT INFORMATION
  Report Type: Spontaneous
  Country: BE (occurrence: BE)
  Receive Date: 20130204
  Receipt Date: 20130208
  Transmission Date: 20140127
  Serious: Yes (Death)
  Sender: FDA-Public Use
  Company Number: BE-ASTRAZENECA-2013SE07407

PATIENT
  Age: 65 Year
  Sex: Male

DRUGS (4)
  1. BRILIQUE [Suspect]
     Route: 048
     Dates: start: 2012, end: 2012
  2. ASAFLOW [Concomitant]
  3. UNSPECIFIED STATIN [Concomitant]
  4. UNSPECIFIED BETA-BLOCKER [Concomitant]

REACTIONS (1)
  - Thrombosis in device [Fatal]
